FAERS Safety Report 8185432 (Version 3)
Quarter: 2014Q2

REPORT INFORMATION
  Report Type: Spontaneous
  Country: US (occurrence: US)
  Receive Date: 20111018
  Receipt Date: 20140423
  Transmission Date: 20141212
  Serious: Yes (Other)
  Sender: FDA-Public Use
  Company Number: US-ASTRAZENECA-2010SE45026

PATIENT
  Age: 66 Year
  Sex: Female
  Weight: 73.9 kg

DRUGS (2)
  1. SYMBICORT PMDI [Suspect]
     Indication: ASTHMA
     Dosage: 160/4.5 MCG, 2 PUFFS BID
     Route: 055
  2. SYMBICORT PMDI [Suspect]
     Indication: MULTIPLE ALLERGIES
     Dosage: 160/4.5 MCG, 2 PUFFS BID
     Route: 055

REACTIONS (7)
  - Dyspnoea [Unknown]
  - Memory impairment [Unknown]
  - Feeling abnormal [Not Recovered/Not Resolved]
  - Cough [Unknown]
  - Off label use [Not Recovered/Not Resolved]
  - Drug prescribing error [Not Recovered/Not Resolved]
  - Drug dose omission [Not Recovered/Not Resolved]
